FAERS Safety Report 8270950-7 (Version None)
Quarter: 2012Q2

REPORT INFORMATION
  Report Type: 
  Country: None (occurrence: None)
  Receive Date: 20120406
  Receipt Date: 20120323
  Transmission Date: 20120825
  Serious: Yes (Hospitalization)
  Sender: FDA-Public Use
  Company Number: 2012000060

PATIENT
  Age: 88 Year
  Sex: Female
  Weight: 50.8 kg

DRUGS (9)
  1. OMEPRAZOLE [Concomitant]
  2. ACEON [Suspect]
     Dosage: 10 MG, ORAL 8 MG
     Dates: start: 20111017
  3. ACEON [Suspect]
     Dosage: 10 MG, ORAL 8 MG
     Dates: end: 20111017
  4. CITALOPRAM HYDROBROMIDE [Concomitant]
  5. AMLODIPINE BESYLATE [Suspect]
     Indication: PRODUCT USED FOR UNKNOWN INDICATION
     Dosage: ORAL
     Route: 048
     Dates: end: 20111017
  6. IRBESARTAN + HYDROCHLOROTHIAZIDE [Suspect]
     Indication: PRODUCT USED FOR UNKNOWN INDICATION
     Dosage: ORAL
     Route: 048
     Dates: end: 20111017
  7. CRESTOR [Concomitant]
  8. GALANTAMINE HYDROBROMIDE [Concomitant]
  9. METOPROLOL TARTRATE [Suspect]
     Indication: PRODUCT USED FOR UNKNOWN INDICATION
     Dosage: ORAL
     Route: 048
     Dates: end: 20111017

REACTIONS (5)
  - HYPONATRAEMIA [None]
  - ORTHOSTATIC HYPOTENSION [None]
  - BRADYCARDIA [None]
  - FALL [None]
  - PRESYNCOPE [None]
